FAERS Safety Report 9617740 (Version 1)
Quarter: 2013Q4

REPORT INFORMATION
  Report Type: Spontaneous
  Country: MX (occurrence: MX)
  Receive Date: 20131011
  Receipt Date: 20131011
  Transmission Date: 20140711
  Serious: Yes (Hospitalization)
  Sender: FDA-Public Use
  Company Number: PHHY2013MX113663

PATIENT
  Age: 15 Year
  Sex: Female

DRUGS (7)
  1. HYDROCORTISONE [Suspect]
     Route: 061
  2. TACROLIMUS [Suspect]
     Route: 061
  3. HYDROXYZINE [Suspect]
     Route: 061
  4. CETIRIZINE [Suspect]
     Route: 061
  5. PREDNISONE [Suspect]
     Route: 061
  6. DEFLAZACORTE [Suspect]
     Route: 061
  7. EPINASTINE [Suspect]
     Route: 061

REACTIONS (1)
  - Dermatitis atopic [Unknown]
